FAERS Safety Report 6435437-2 (Version None)
Quarter: 2009Q4

REPORT INFORMATION
  Report Type: 
  Country: None (occurrence: None)
  Receive Date: 20091106
  Receipt Date: 20091027
  Transmission Date: 20100525
  Serious: Yes (Life-Threatening, Other)
  Sender: FDA-Public Use
  Company Number: JPI-P-008939

PATIENT
  Sex: Female

DRUGS (3)
  1. XYREM [Suspect]
     Indication: DRUG USE FOR UNKNOWN INDICATION
     Dosage: ORAL
     Route: 048
  2. ALPRAZOLAM [Suspect]
     Indication: DRUG USE FOR UNKNOWN INDICATION
  3. UNSPECIFIED BENZODIAZEPINE [Concomitant]

REACTIONS (3)
  - COMA [None]
  - DRUG INTERACTION [None]
  - UNEVALUABLE EVENT [None]
